FAERS Safety Report 4842208-7 (Version None)
Quarter: 2005Q4

REPORT INFORMATION
  Report Type: 
  Country: None (occurrence: None)
  Receive Date: 20051129
  Receipt Date: 20051114
  Transmission Date: 20060501
  Serious: Yes (Hospitalization)
  Sender: FDA-Public Use
  Company Number: 2005BI020732

PATIENT
  Age: 47 Year
  Sex: Female
  Weight: 102.0593 kg

DRUGS (1)
  1. AVONEX [Suspect]
     Indication: MULTIPLE SCLEROSIS
     Dosage: 30 UG; QW; IM
     Route: 030
     Dates: start: 20040501, end: 20051105

REACTIONS (3)
  - ANGINA PECTORIS [None]
  - BLOOD GLUCOSE INCREASED [None]
  - WEIGHT INCREASED [None]
